FAERS Safety Report 12672944 (Version 1)
Quarter: 2016Q3

REPORT INFORMATION
  Report Type: Spontaneous
  Country: US (occurrence: US)
  Receive Date: 20160822
  Receipt Date: 20160822
  Transmission Date: 20161109
  Serious: Yes (Other)
  Sender: FDA-Public Use
  Company Number: US-BAYER-2016-161819

PATIENT
  Age: 86 Year
  Sex: Male
  Weight: 68.27 kg

DRUGS (3)
  1. BAYER LOW DOSE [Suspect]
     Active Substance: ASPIRIN
     Indication: ISCHAEMIC HEART DISEASE PROPHYLAXIS
  2. BAYER LOW DOSE [Suspect]
     Active Substance: ASPIRIN
     Indication: HYPERTENSION
     Dosage: 1 DF, (TAKING IT ON AND OFF SINCE 2014)
     Route: 048
  3. BAYER LOW DOSE [Suspect]
     Active Substance: ASPIRIN
     Indication: HEADACHE

REACTIONS (5)
  - Renal haemorrhage [Recovered/Resolved]
  - Blood urine present [Recovered/Resolved]
  - Skin discolouration [Unknown]
  - Product use issue [None]
  - Expired product administered [None]

NARRATIVE: CASE EVENT DATE: 2010
